FAERS Safety Report 8509029-5 (Version None)
Quarter: 2012Q3

REPORT INFORMATION
  Report Type: 
  Country: None (occurrence: None)
  Receive Date: 20120713
  Receipt Date: 20120704
  Transmission Date: 20120928
  Serious: Yes (Other)
  Sender: FDA-Public Use
  Company Number: JP-VERTEX PHARMACEUTICALS INC.-AE-2012-010032

PATIENT
  Age: 57 Year
  Sex: Female

DRUGS (13)
  1. TELAVIC (TELAPREVIR) [Suspect]
     Indication: HEPATITIS C
     Route: 048
     Dates: start: 20120106, end: 20120330
  2. REBETOL [Concomitant]
     Indication: HEPATITIS C
     Route: 048
     Dates: start: 20120106, end: 20120301
  3. ALDACTONE [Concomitant]
     Route: 048
     Dates: end: 20120219
  4. ALLEGRA [Concomitant]
     Route: 048
     Dates: start: 20120106, end: 20120426
  5. ALDACTONE [Concomitant]
     Route: 048
  6. REBETOL [Concomitant]
     Route: 048
     Dates: start: 20120309, end: 20120406
  7. REBETOL [Concomitant]
     Route: 048
     Dates: start: 20120416, end: 20120427
  8. REBETOL [Concomitant]
     Route: 048
     Dates: start: 20120302, end: 20120307
  9. REBETOL [Concomitant]
     Route: 048
     Dates: start: 20120303, end: 20120308
  10. PEG-INTRON [Concomitant]
     Indication: HEPATITIS C
     Route: 058
     Dates: start: 20120106, end: 20120330
  11. RIKKUNSHITO [Concomitant]
     Route: 048
     Dates: start: 20120106, end: 20120426
  12. PEG-INTRON [Concomitant]
     Route: 058
     Dates: start: 20120413, end: 20120413
  13. RABEPRAZOLE SODIUM [Concomitant]
     Route: 048

REACTIONS (1)
  - RETINOPATHY [None]
